FAERS Safety Report 8965736 (Version 1)
Quarter: 2012Q4

REPORT INFORMATION
  Report Type: Spontaneous
  Country: DE (occurrence: None)
  Receive Date: 20121204
  Receipt Date: 20121204
  Transmission Date: 20130627
  Serious: Yes (Other)
  Sender: FDA-Public Use
  Company Number: ACO_33122_2012

PATIENT
  Age: 68 Year
  Sex: Female

DRUGS (2)
  1. FAMPYRA [Suspect]
     Dates: start: 20120817
  2. CITALOPRAM (CITALOPRAM HYDROBROMIDE) [Concomitant]

REACTIONS (1)
  - Grand mal convulsion [None]
